FAERS Safety Report 9675438 (Version 1)
Quarter: 2013Q4

REPORT INFORMATION
  Report Type: Spontaneous
  Country: IT (occurrence: IT)
  Receive Date: 20131107
  Receipt Date: 20131107
  Transmission Date: 20140711
  Serious: Yes (Other)
  Sender: FDA-Public Use
  Company Number: IT-MYLANLABS-2013S1024197

PATIENT
  Age: 75 Year
  Sex: Female

DRUGS (3)
  1. OXYBUTYNIN HYDROCHLORIDE, S- [Suspect]
     Indication: CYSTITIS
     Route: 048
     Dates: start: 20131002
  2. CIPRALEX [Concomitant]
     Indication: PRODUCT USED FOR UNKNOWN INDICATION
  3. RIVOTRIL [Concomitant]
     Indication: PRODUCT USED FOR UNKNOWN INDICATION

REACTIONS (2)
  - Diplopia [Recovering/Resolving]
  - Presyncope [Recovering/Resolving]
